FAERS Safety Report 4295975-8 (Version None)
Quarter: 2004Q1

REPORT INFORMATION
  Report Type: 
  Country: None (occurrence: None)
  Receive Date: 20040212
  Receipt Date: 20040202
  Transmission Date: 20041129
  Serious: Yes (Hospitalization)
  Sender: FDA-Public Use
  Company Number: HQWYE797203FEB04

PATIENT
  Age: 62 Year
  Sex: Female
  Weight: 71.73 kg

DRUGS (1)
  1. PREMPRO [Suspect]
     Indication: MENOPAUSE
     Dosage: 0.625MG/2.5 MG TABLET DAILY, ORAL
     Route: 048
     Dates: start: 19990101, end: 20031001

REACTIONS (6)
  - ASTHENIA [None]
  - DIZZINESS [None]
  - FEELING ABNORMAL [None]
  - HEART RATE INCREASED [None]
  - INJURY [None]
  - MOUTH HAEMORRHAGE [None]
